FAERS Safety Report 8383540-2 (Version None)
Quarter: 2012Q2

REPORT INFORMATION
  Report Type: 
  Country: None (occurrence: None)
  Receive Date: 20120524
  Receipt Date: 20120515
  Transmission Date: 20120825
  Serious: Yes (Other)
  Sender: FDA-Public Use
  Company Number: CA-ASTRAZENECA-2012SE31286

PATIENT
  Age: 47 Year
  Sex: Female
  Weight: 54.4 kg

DRUGS (3)
  1. ATORVASTATIN CALCIUM [Concomitant]
  2. NEXIUM [Suspect]
     Indication: DYSGEUSIA
     Route: 048
     Dates: start: 20120301
  3. COZAAR [Concomitant]
     Indication: HYPERTENSION

REACTIONS (3)
  - INTENTIONAL DRUG MISUSE [None]
  - HYPERTENSION [None]
  - RETINAL VEIN OCCLUSION [None]
